FAERS Safety Report 14013709 (Version 1)
Quarter: 2017Q3

REPORT INFORMATION
  Report Type: Spontaneous
  Country: FR (occurrence: FR)
  Receive Date: 20170926
  Receipt Date: 20170926
  Transmission Date: 20171128
  Serious: Yes (Other)
  Sender: FDA-Public Use
  Company Number: FR-MERCK KGAA-2027821

PATIENT
  Age: 84 Year
  Sex: Female

DRUGS (2)
  1. NOVOTHYROX [Suspect]
     Active Substance: LEVOTHYROXINE SODIUM
     Indication: PRODUCT USED FOR UNKNOWN INDICATION
     Route: 065
     Dates: start: 201707
  2. METFORMINE [Concomitant]
     Active Substance: METFORMIN HYDROCHLORIDE
     Route: 065

REACTIONS (9)
  - Exophthalmos [Recovering/Resolving]
  - Fatigue [Recovering/Resolving]
  - Dyspnoea [Recovering/Resolving]
  - Feeling hot [Recovering/Resolving]
  - Initial insomnia [Recovering/Resolving]
  - Decreased appetite [Recovering/Resolving]
  - Micturition urgency [Recovering/Resolving]
  - Dizziness [Recovering/Resolving]
  - Cardiac disorder [Recovering/Resolving]

NARRATIVE: CASE EVENT DATE: 201708
